FAERS Safety Report 15994185 (Version 2)
Quarter: 2019Q1

REPORT INFORMATION
  Report Type: Report from Study
  Country: NL (occurrence: NL)
  Receive Date: 20190222
  Receipt Date: 20190320
  Transmission Date: 20190418
  Serious: Yes (Hospitalization)
  Sender: FDA-Public Use
  Company Number: NL-ROCHE-2266674

PATIENT
  Age: 59 Year
  Sex: Female

DRUGS (3)
  1. BLINDED ACETYLSALICYLIC ACID [Suspect]
     Active Substance: ASPIRIN
     Indication: OVARIAN CANCER
     Dosage: LAST DOSE PRIOR TO SAE: 20/JAN/2019
     Route: 048
     Dates: start: 20181212, end: 20190120
  2. ATEZOLIZUMAB. [Suspect]
     Active Substance: ATEZOLIZUMAB
     Indication: OVARIAN CANCER
     Dosage: LAST DOSE PRIOR TO SAE: 31/DEC/2018
     Route: 042
     Dates: start: 20181212, end: 20190121
  3. BEVACIZUMAB. [Suspect]
     Active Substance: BEVACIZUMAB
     Indication: OVARIAN CANCER
     Dosage: LAST DOSE PRIOR TO SAE: 31/DEC/2018
     Route: 042
     Dates: start: 20181212, end: 20190121

REACTIONS (1)
  - Ileal perforation [Recovered/Resolved]

NARRATIVE: CASE EVENT DATE: 20190120
